FAERS Safety Report 8027059-7 (Version None)
Quarter: 2012Q1

REPORT INFORMATION
  Report Type: 
  Country: None (occurrence: None)
  Receive Date: 20120103
  Receipt Date: 20111221
  Transmission Date: 20120608
  Serious: Yes (Hospitalization)
  Sender: FDA-Public Use
  Company Number: 2011MA018014

PATIENT
  Age: 23 Year
  Sex: Male

DRUGS (4)
  1. CHLORPROMAZINE HYDROCHLORIDE [Suspect]
     Dosage: 500 MG;QD
     Dates: start: 20070101
  2. LACTULOSE [Concomitant]
  3. VALPROIC ACID [Suspect]
     Dosage: 250 MG;BID
  4. PROCYCLIDINE HYDROCHLORIDE 2MG TAB [Concomitant]

REACTIONS (2)
  - REFUSAL OF TREATMENT BY PATIENT [None]
  - NEUTROPENIC SEPSIS [None]
